FAERS Safety Report 7059134-8 (Version None)
Quarter: 2010Q4

REPORT INFORMATION
  Report Type: 
  Country: None (occurrence: None)
  Receive Date: 20101025
  Receipt Date: 20101012
  Transmission Date: 20110411
  Serious: No
  Sender: FDA-Public Use
  Company Number: US-BIOGENIDEC-2010BI036017

PATIENT
  Age: 45 Year
  Sex: Male

DRUGS (2)
  1. TYSABRI [Suspect]
     Indication: MULTIPLE SCLEROSIS
     Route: 042
     Dates: start: 20090603, end: 20100601
  2. TYSABRI [Suspect]
     Route: 042
     Dates: start: 20100901

REACTIONS (2)
  - DEPRESSION [None]
  - SUICIDAL IDEATION [None]
